FAERS Safety Report 4706475-2 (Version None)
Quarter: 2005Q3

REPORT INFORMATION
  Report Type: 
  Country: None (occurrence: None)
  Receive Date: 20050705
  Receipt Date: 20050527
  Transmission Date: 20060218
  Serious: Yes (Hospitalization)
  Sender: FDA-Public Use
  Company Number: FR-GLAXOSMITHKLINE-B0382624A

PATIENT
  Age: 78 Year
  Sex: Female

DRUGS (10)
  1. DEROXAT [Suspect]
     Indication: ILL-DEFINED DISORDER
     Route: 048
     Dates: end: 20050502
  2. ATARAX [Suspect]
     Route: 048
     Dates: end: 20050502
  3. PARKINANE [Suspect]
     Indication: DYSKINESIA
     Route: 048
     Dates: start: 20050427, end: 20050502
  4. LASIX [Concomitant]
     Route: 048
  5. SECTRAL [Concomitant]
     Route: 048
  6. NEXIUM [Concomitant]
     Route: 048
  7. VECTARION [Concomitant]
  8. NICARDIPINE HCL [Concomitant]
  9. FORLAX [Concomitant]
  10. DOLIPRANE [Concomitant]

REACTIONS (12)
  - ABDOMINAL DISTENSION [None]
  - ABDOMINAL PAIN UPPER [None]
  - AGITATION [None]
  - ANTICHOLINERGIC SYNDROME [None]
  - DEHYDRATION [None]
  - DEPRESSED LEVEL OF CONSCIOUSNESS [None]
  - DRY MOUTH [None]
  - DYSKINESIA [None]
  - GENERAL PHYSICAL HEALTH DETERIORATION [None]
  - HYPERTHERMIA [None]
  - RENAL FAILURE [None]
  - VOMITING [None]
